FAERS Safety Report 8146310-6 (Version None)
Quarter: 2012Q1

REPORT INFORMATION
  Report Type: 
  Country: None (occurrence: None)
  Receive Date: 20120217
  Receipt Date: 20111227
  Transmission Date: 20120608
  Serious: No
  Sender: FDA-Public Use
  Company Number: US-ABBOTT-11P-163-0886556-00

PATIENT
  Sex: Female
  Weight: 60.836 kg

DRUGS (3)
  1. SIMCOR [Suspect]
     Indication: BLOOD CHOLESTEROL INCREASED
     Dosage: 500/20 MG AT BEDTIME
     Dates: start: 20101201, end: 20111101
  2. SIMCOR [Suspect]
     Dosage: 500/20 MG AT BEDTIME
     Dates: start: 20111213
  3. OMEPRAZOLE [Concomitant]
     Indication: PRODUCT USED FOR UNKNOWN INDICATION

REACTIONS (4)
  - GENERALISED ERYTHEMA [None]
  - FEELING HOT [None]
  - PRURITUS GENERALISED [None]
  - BLOOD CHOLESTEROL INCREASED [None]
